FAERS Safety Report 7033919-6 (Version None)
Quarter: 2010Q4

REPORT INFORMATION
  Report Type: 
  Country: None (occurrence: None)
  Receive Date: 20101007
  Receipt Date: 20100929
  Transmission Date: 20110411
  Serious: Yes (Hospitalization)
  Sender: FDA-Public Use
  Company Number: BR-AMGEN-QUU442591

PATIENT
  Age: 64 Year
  Sex: Female
  Weight: 65 kg

DRUGS (7)
  1. ENBREL [Suspect]
     Indication: RHEUMATOID ARTHRITIS
     Route: 058
     Dates: start: 20090818, end: 20100621
  2. CALCIUM [Concomitant]
  3. FOLIC ACID [Concomitant]
  4. ALENDRONATE SODIUM [Concomitant]
  5. OMEPRAZOLE [Concomitant]
  6. HYDROCORTISONE [Concomitant]
  7. VITAMIN D3 [Concomitant]

REACTIONS (3)
  - FALL [None]
  - FRACTURE [None]
  - URINARY TRACT INFECTION [None]
